FAERS Safety Report 20478890 (Version 1)
Quarter: 2022Q1

REPORT INFORMATION
  Report Type: Spontaneous
  Country: JO (occurrence: JO)
  Receive Date: 20220216
  Receipt Date: 20220216
  Transmission Date: 20220423
  Serious: Yes (Hospitalization, Other)
  Sender: FDA-Public Use
  Company Number: JO-Accord-253888

PATIENT
  Age: 21 Year
  Sex: Male

DRUGS (7)
  1. METHOTREXATE [Suspect]
     Active Substance: METHOTREXATE
     Indication: Precursor T-lymphoblastic lymphoma/leukaemia
     Dosage: ON THE SECOND DAY
     Route: 037
  2. CYTARABINE [Suspect]
     Active Substance: CYTARABINE
     Indication: Precursor T-lymphoblastic lymphoma/leukaemia
     Dosage: 3 G OVER 2 H EVERY 12 H ON THE SECOND AND THIRD DAYS
     Route: 042
  3. METHYLPREDNISOLONE [Concomitant]
     Active Substance: METHYLPREDNISOLONE
     Indication: Precursor T-lymphoblastic lymphoma/leukaemia
     Dosage: 50MG FROM DAY ONE TO THREE
     Route: 042
  4. GRANULOCYTE COLONY STIMULATING FACT [Concomitant]
     Indication: Prophylaxis
     Route: 058
  5. MEROPENEM [Concomitant]
     Active Substance: MEROPENEM
     Indication: Prophylaxis
     Route: 042
  6. LEUCOVORIN [Concomitant]
     Active Substance: LEUCOVORIN
     Indication: Precursor T-lymphoblastic lymphoma/leukaemia
     Dosage: EVERY 6 H
     Route: 042
  7. TEICOPLANIN [Concomitant]
     Active Substance: TEICOPLANIN
     Indication: Prophylaxis
     Route: 042

REACTIONS (3)
  - Febrile neutropenia [Recovering/Resolving]
  - White blood cell count decreased [Recovering/Resolving]
  - Normocytic anaemia [Recovering/Resolving]
